FAERS Safety Report 21356074 (Version 4)
Quarter: 2023Q2

REPORT INFORMATION
  Report Type: Report from Study
  Country: US (occurrence: US)
  Receive Date: 20220920
  Receipt Date: 20230502
  Transmission Date: 20230722
  Serious: Yes (Hospitalization, Other)
  Sender: FDA-Public Use
  Company Number: US-ABBVIE-22K-163-4506471-00

PATIENT
  Sex: Male

DRUGS (2)
  1. IMBRUVICA [Suspect]
     Active Substance: IBRUTINIB
     Indication: Chronic lymphocytic leukaemia
     Dosage: FORM STRENGTH: 280 MG
     Route: 048
  2. IMBRUVICA [Suspect]
     Active Substance: IBRUTINIB
     Indication: Chronic lymphocytic leukaemia
     Dosage: FORM STRENGTH: 280 MG?DOSE REDUCTION
     Route: 048
     Dates: start: 20211101

REACTIONS (9)
  - Diverticulitis [Recovering/Resolving]
  - Nausea [Unknown]
  - White blood cell count decreased [Unknown]
  - Pain [Unknown]
  - Kidney infection [Unknown]
  - Abdominal abscess [Unknown]
  - Full blood count abnormal [Unknown]
  - Tooth disorder [Recovering/Resolving]
  - Unevaluable event [Recovering/Resolving]

NARRATIVE: CASE EVENT DATE: 20220101
